FAERS Safety Report 5441466-8 (Version None)
Quarter: 2007Q3

REPORT INFORMATION
  Report Type: 
  Country: None (occurrence: None)
  Receive Date: 20070904
  Receipt Date: 20070828
  Transmission Date: 20080115
  Serious: Yes (Other)
  Sender: FDA-Public Use
  Company Number: GR-ELI_LILLY_AND_COMPANY-GR200708006323

PATIENT
  Age: 107 Year
  Sex: Male

DRUGS (3)
  1. OLANZAPINE [Suspect]
     Indication: PSYCHOTIC DISORDER
     Dosage: 5 MG, DAILY (1/D)
     Route: 048
     Dates: start: 20070817, end: 20070801
  2. LASIX [Concomitant]
     Indication: CARDIAC FAILURE
     Dosage: UNK, UNK
     Route: 048
     Dates: end: 20070801
  3. ALDACTONE [Concomitant]
     Indication: CARDIAC FAILURE
     Dates: end: 20070801

REACTIONS (1)
  - GASTROINTESTINAL HAEMORRHAGE [None]
